FAERS Safety Report 10166643 (Version 1)
Quarter: 2014Q2

REPORT INFORMATION
  Report Type: Spontaneous
  Country: US (occurrence: None)
  Receive Date: 20140509
  Receipt Date: 20140509
  Transmission Date: 20141212
  Serious: Yes (Hospitalization)
  Sender: FDA-Public Use
  Company Number: None

PATIENT
  Age: 60 Year
  Sex: Female
  Weight: 93.2 kg

DRUGS (2)
  1. CIPRO [Suspect]
     Indication: URINARY TRACT INFECTION
     Route: 048
     Dates: start: 20140417, end: 20140421
  2. CIPRO [Suspect]
     Indication: KLEBSIELLA INFECTION
     Route: 048
     Dates: start: 20140417, end: 20140421

REACTIONS (6)
  - Dyspnoea [None]
  - Chest pain [None]
  - Hypoaesthesia [None]
  - Dizziness [None]
  - Palpitations [None]
  - Supraventricular tachycardia [None]
